FAERS Safety Report 6486051-4 (Version None)
Quarter: 2009Q4

REPORT INFORMATION
  Report Type: 
  Country: None (occurrence: None)
  Receive Date: 20091209
  Receipt Date: 20090817
  Transmission Date: 20100525
  Serious: No
  Sender: FDA-Public Use
  Company Number: US-AMGEN-KDL358595

PATIENT
  Sex: Female

DRUGS (4)
  1. ENBREL [Suspect]
     Indication: PSORIASIS
     Route: 058
     Dates: start: 20060222
  2. PROZAC [Concomitant]
  3. WELLBUTRIN [Concomitant]
  4. CHANTIX [Concomitant]

REACTIONS (7)
  - OROPHARYNGEAL PAIN [None]
  - PNEUMONIA [None]
  - PSORIASIS [None]
  - STRESS [None]
  - THERAPEUTIC RESPONSE DECREASED [None]
  - TOBACCO WITHDRAWAL SYMPTOMS [None]
  - UPPER RESPIRATORY TRACT INFECTION [None]
